FAERS Safety Report 4411340-4 (Version None)
Quarter: 2004Q3

REPORT INFORMATION
  Report Type: 
  Country: None (occurrence: None)
  Receive Date: 20040727
  Receipt Date: 20040713
  Transmission Date: 20050211
  Serious: Yes (Life-Threatening, Hospitalization)
  Sender: FDA-Public Use
  Company Number: 1999UW00230

PATIENT
  Age: 5 Month
  Sex: Male
  Weight: 6 kg

DRUGS (12)
  1. PROPOFOL [Suspect]
     Indication: POST PROCEDURAL COMPLICATION
     Dosage: 1 MG/KG/HR IV
     Route: 042
     Dates: start: 19990101, end: 19990101
  2. PROPOFOL [Suspect]
     Indication: SEDATION
     Dosage: 1 MG/KG/HR IV
     Route: 042
     Dates: start: 19990101, end: 19990101
  3. PROPOFOL [Suspect]
     Indication: POST PROCEDURAL COMPLICATION
     Dosage: 11 MG/KG/HR IV
     Route: 042
  4. PROPOFOL [Suspect]
     Indication: SEDATION
     Dosage: 11 MG/KG/HR IV
     Route: 042
  5. PROPOFOL [Suspect]
     Indication: POST PROCEDURAL COMPLICATION
     Dosage: 13 MG/KG/HR IV
     Route: 042
  6. PROPOFOL [Suspect]
     Indication: SEDATION
     Dosage: 13 MG/KG/HR IV
     Route: 042
  7. PROPOFOL [Suspect]
     Indication: POST PROCEDURAL COMPLICATION
     Dosage: 15 MG/KG/HR IV
     Route: 042
  8. PROPOFOL [Suspect]
     Indication: SEDATION
     Dosage: 15 MG/KG/HR IV
     Route: 042
  9. FENTANYL [Concomitant]
  10. VECURONIUM BROMIDE [Concomitant]
  11. CISAPRIDE [Concomitant]
  12. RANITIDINE [Concomitant]

REACTIONS (30)
  - AGITATION POSTOPERATIVE [None]
  - ATRIOVENTRICULAR BLOCK COMPLETE [None]
  - ATRIOVENTRICULAR BLOCK SECOND DEGREE [None]
  - BLOOD TEST ABNORMAL [None]
  - BLOOD TRIGLYCERIDES INCREASED [None]
  - CEREBRAL INFARCTION [None]
  - CHROMATURIA [None]
  - COAGULOPATHY [None]
  - DRUG INEFFECTIVE [None]
  - DRUG LEVEL INCREASED [None]
  - ENCEPHALOPATHY [None]
  - HAEMODIALYSIS [None]
  - HEPATIC FAILURE [None]
  - HEPATIC NECROSIS [None]
  - HYPERKALAEMIA [None]
  - HYPERPHOSPHATAEMIA [None]
  - LACTIC ACIDOSIS [None]
  - LIPIDS INCREASED [None]
  - METABOLIC ACIDOSIS [None]
  - POST PROCEDURAL COMPLICATION [None]
  - PROCEDURAL HYPOTENSION [None]
  - PROPOFOL INFUSION SYNDROME [None]
  - RENAL FAILURE ACUTE [None]
  - RESPIRATORY FAILURE [None]
  - RHABDOMYOLYSIS [None]
  - SINUS BRADYCARDIA [None]
  - SUPRAVENTRICULAR TACHYCARDIA [None]
  - TACHYCARDIA [None]
  - THERAPEUTIC AGENT TOXICITY [None]
  - VENTRICULAR TACHYCARDIA [None]
